FAERS Safety Report 25357713 (Version 3)
Quarter: 2025Q3

REPORT INFORMATION
  Report Type: Report from Study
  Country: KR (occurrence: KR)
  Receive Date: 20250526
  Receipt Date: 20250724
  Transmission Date: 20251021
  Serious: No
  Sender: TAKEDA
  Company Number: KR-TAKEDA-2025TUS049059

PATIENT
  Age: 27 Year
  Sex: Female
  Weight: 52.3 kg

DRUGS (10)
  1. VEDOLIZUMAB [Suspect]
     Active Substance: VEDOLIZUMAB
     Indication: Colitis ulcerative
     Dates: start: 20230920, end: 20240207
  2. VEDOLIZUMAB [Suspect]
     Active Substance: VEDOLIZUMAB
  3. VEDOLIZUMAB [Suspect]
     Active Substance: VEDOLIZUMAB
     Indication: Colitis ulcerative
  4. SOOLANTRA [Concomitant]
     Active Substance: IVERMECTIN
     Indication: Injection site pruritus
     Dosage: UNK UNK, QD
     Dates: start: 20230920
  5. TANTUM [Concomitant]
     Active Substance: BENZYDAMINE HYDROCHLORIDE
     Indication: Oropharyngeal pain
     Dates: start: 20231023, end: 20231225
  6. ASACOL [Concomitant]
     Active Substance: MESALAMINE
     Dosage: 1600 MILLIGRAM, BID
     Dates: start: 20221217
  7. AZATHIOPRINE [Concomitant]
     Active Substance: AZATHIOPRINE
     Dosage: 100 MILLIGRAM, QD
     Dates: start: 20160408
  8. HYDROCORTISONE SODIUM SUCCINATE [Concomitant]
     Active Substance: HYDROCORTISONE SODIUM SUCCINATE
     Dosage: 100 MILLIGRAM, QD
     Dates: start: 20240115, end: 20240115
  9. Solondo [Concomitant]
     Indication: Haematochezia
     Dosage: 20 MILLIGRAM, QD
     Dates: start: 20240115, end: 20240129
  10. Solondo [Concomitant]
     Dosage: 30 MILLIGRAM, QD
     Dates: start: 20240130, end: 20240215

REACTIONS (1)
  - No adverse event [Unknown]
